FAERS Safety Report 24446367 (Version 1)
Quarter: 2024Q4

REPORT INFORMATION
  Report Type: Spontaneous
  Country: CA (occurrence: CA)
  Receive Date: 20241016
  Receipt Date: 20241016
  Transmission Date: 20250115
  Serious: Yes (Other)
  Sender: TEVA
  Company Number: CA-TEVA-VS-3252459

PATIENT
  Age: 20 Year
  Sex: Female

DRUGS (2)
  1. CLOBAZAM [Suspect]
     Active Substance: CLOBAZAM
     Indication: Seizure
     Route: 065
  2. PHENYTOIN [Suspect]
     Active Substance: PHENYTOIN
     Indication: Seizure
     Route: 065

REACTIONS (1)
  - Seizure [Unknown]
